FAERS Safety Report 23595025 (Version 1)
Quarter: 2024Q1

REPORT INFORMATION
  Report Type: Spontaneous
  Country: US (occurrence: US)
  Receive Date: 20240305
  Receipt Date: 20240305
  Transmission Date: 20240410
  Serious: No
  Sender: FDA-Public Use
  Company Number: US-TEVA-VS-3155211

PATIENT
  Age: 8 Year
  Sex: Male

DRUGS (1)
  1. PENICILLIN V [Suspect]
     Active Substance: PENICILLIN V
     Indication: Product used for unknown indication
     Route: 065

REACTIONS (1)
  - Rash [Unknown]

NARRATIVE: CASE EVENT DATE: 19720101
